FAERS Safety Report 22170619 (Version 2)
Quarter: 2023Q2

REPORT INFORMATION
  Report Type: Report from Study
  Country: AE (occurrence: None)
  Receive Date: 20230404
  Receipt Date: 20230510
  Transmission Date: 20230721
  Serious: Yes (Hospitalization)
  Sender: FDA-Public Use
  Company Number: 2023A073821

PATIENT
  Age: 68 Year
  Sex: Male
  Weight: 98.2 kg

DRUGS (1)
  1. EVUSHELD [Suspect]
     Active Substance: CILGAVIMAB\TIXAGEVIMAB
     Indication: COVID-19 treatment
     Dosage: 600 MG (AZD8895 AND AZD1061)/ONCE/SINGLE ADMINISTRATION, LOCATION: GLUTEUS
     Route: 030
     Dates: start: 20230120

REACTIONS (2)
  - Hydronephrosis [Recovered/Resolved]
  - Prostate cancer [Unknown]

NARRATIVE: CASE EVENT DATE: 20230309
